FAERS Safety Report 10062873 (Version 2)
Quarter: 2014Q3

REPORT INFORMATION
  Report Type: Spontaneous
  Country: US (occurrence: US)
  Receive Date: 20140407
  Receipt Date: 20140804
  Transmission Date: 20150326
  Serious: Yes (Other)
  Sender: FDA-Public Use
  Company Number: US-BAYER-2014-051776

PATIENT
  Age: 32 Year
  Sex: Female
  Weight: 73 kg

DRUGS (2)
  1. BEYAZ [Suspect]
     Active Substance: DROSPIRENONE\ETHINYL ESTRADIOL\LEVOMEFOLATE CALCIUM
     Indication: VAGINAL HAEMORRHAGE
     Dosage: UNK
     Route: 048
     Dates: start: 20140226, end: 20140402
  2. MIRENA [Suspect]
     Active Substance: LEVONORGESTREL
     Indication: CONTRACEPTION
     Dosage: 20 MCG/24HR, CONT
     Route: 015
     Dates: start: 20131016, end: 20140402

REACTIONS (6)
  - Abdominal pain lower [None]
  - Drug ineffective for unapproved indication [None]
  - Device expulsion [Recovered/Resolved]
  - Vaginal haemorrhage [Not Recovered/Not Resolved]
  - Device dislocation [Recovered/Resolved]
  - Off label use [None]

NARRATIVE: CASE EVENT DATE: 20131016
